FAERS Safety Report 19767180 (Version 1)
Quarter: 2021Q3

REPORT INFORMATION
  Report Type: Spontaneous
  Country: SG (occurrence: SG)
  Receive Date: 20210830
  Receipt Date: 20210830
  Transmission Date: 20211014
  Serious: Yes (Disabling)
  Sender: FDA-Public Use
  Company Number: None

PATIENT
  Age: 31 Year
  Sex: Female
  Weight: 67 kg

DRUGS (6)
  1. ELOMET [Suspect]
     Active Substance: MOMETASONE FUROATE
     Indication: ECZEMA
  2. MAGNESIUM [Concomitant]
     Active Substance: MAGNESIUM
  3. VITAMINS C, D, E [Concomitant]
  4. ZINC. [Concomitant]
     Active Substance: ZINC
  5. CLOBETASOL OINTMENT [Suspect]
     Active Substance: CLOBETASOL
  6. FISH OIL [Concomitant]
     Active Substance: FISH OIL

REACTIONS (10)
  - Insomnia [None]
  - Muscle twitching [None]
  - Neuralgia [None]
  - Pruritus [None]
  - Flushing [None]
  - Weight decreased [None]
  - Skin atrophy [None]
  - Skin exfoliation [None]
  - Depression [None]
  - Feeling of body temperature change [None]

NARRATIVE: CASE EVENT DATE: 20210517
